FAERS Safety Report 14984873 (Version 1)
Quarter: 2018Q2

REPORT INFORMATION
  Report Type: Spontaneous
  Country: CA (occurrence: CA)
  Receive Date: 20180607
  Receipt Date: 20180607
  Transmission Date: 20180711
  Serious: Yes (Disabling, Other)
  Sender: FDA-Public Use
  Company Number: CA-ROCHE-2133683

PATIENT
  Sex: Female

DRUGS (3)
  1. CORTISONE [Concomitant]
     Active Substance: CORTISONE\HYDROCORTISONE
  2. ACTEMRA [Suspect]
     Active Substance: TOCILIZUMAB
     Indication: PRODUCT USED FOR UNKNOWN INDICATION
     Route: 065
  3. AERIUS (CANADA) [Concomitant]

REACTIONS (12)
  - Infusion related reaction [Unknown]
  - Foot deformity [Unknown]
  - Pain [Unknown]
  - Pain in extremity [Unknown]
  - Gastric disorder [Unknown]
  - Infection [Unknown]
  - Rash [Unknown]
  - Hip fracture [Unknown]
  - Drug ineffective [Unknown]
  - Arthralgia [Unknown]
  - Fall [Unknown]
  - Joint swelling [Unknown]
